FAERS Safety Report 14629447 (Version 1)
Quarter: 2018Q1

REPORT INFORMATION
  Report Type: Spontaneous
  Country: US (occurrence: US)
  Receive Date: 20180312
  Receipt Date: 20180312
  Transmission Date: 20180509
  Serious: Yes (Disabling)
  Sender: FDA-Public Use
  Company Number: None

PATIENT
  Age: 54 Year
  Sex: Female
  Weight: 66.6 kg

DRUGS (5)
  1. CALTRATE [Concomitant]
     Active Substance: CALCIUM CARBONATE
  2. ZYRTEC [Concomitant]
     Active Substance: CETIRIZINE HYDROCHLORIDE
  3. MULTIVITAMIN GUMMY [Concomitant]
  4. MESALAMINE DR TABS 1.2 GM [Suspect]
     Active Substance: MESALAMINE
     Indication: COLITIS ULCERATIVE
     Dosage: ?          QUANTITY:2 TABLET(S);?
     Route: 048
     Dates: start: 20180107
  5. ALEVE [Concomitant]
     Active Substance: NAPROXEN SODIUM

REACTIONS (7)
  - Frequent bowel movements [None]
  - Abdominal distension [None]
  - Haemorrhoids [None]
  - Pain [None]
  - Product substitution issue [None]
  - Diarrhoea [None]
  - Haematochezia [None]

NARRATIVE: CASE EVENT DATE: 20180312
